FAERS Safety Report 6826693-7 (Version None)
Quarter: 2010Q3

REPORT INFORMATION
  Report Type: 
  Country: None (occurrence: None)
  Receive Date: 20100709
  Receipt Date: 20100628
  Transmission Date: 20110219
  Serious: Yes (Hospitalization)
  Sender: FDA-Public Use
  Company Number: DE-ELI_LILLY_AND_COMPANY-DE201006007376

PATIENT
  Sex: Female

DRUGS (3)
  1. PEMETREXED [Suspect]
     Dosage: 150 MG, UNK
     Dates: start: 20100519
  2. CISPLATIN [Suspect]
     Dosage: 1000 MG, UNK
     Dates: start: 20100519
  3. BEVACIZUMAB [Suspect]
     Dosage: 705 MG, UNK
     Dates: start: 20100519

REACTIONS (1)
  - TRANSIENT ISCHAEMIC ATTACK [None]
